FAERS Safety Report 7141393-4 (Version None)
Quarter: 2010Q4

REPORT INFORMATION
  Report Type: 
  Country: None (occurrence: None)
  Receive Date: 20101203
  Receipt Date: 20101203
  Transmission Date: 20110411
  Serious: No
  Sender: FDA-Public Use
  Company Number: None

PATIENT
  Age: 61 Year
  Sex: Male
  Weight: 74.8435 kg

DRUGS (1)
  1. HYDROCHLOROTHIAZDE TAB [Suspect]
     Dosage: 25 MG 1DAILY

REACTIONS (2)
  - PRURITUS [None]
  - RASH [None]
